FAERS Safety Report 6835421-0 (Version None)
Quarter: 2010Q3

REPORT INFORMATION
  Report Type: 
  Country: None (occurrence: None)
  Receive Date: 20100712
  Receipt Date: 20100712
  Transmission Date: 20110219
  Serious: Yes (Other)
  Sender: FDA-Public Use
  Company Number: None

PATIENT
  Age: 87 Year
  Sex: Male
  Weight: 79.3795 kg

DRUGS (1)
  1. TYLENOL-500 [Suspect]
     Indication: PAIN
     Dates: start: 20090402, end: 20100603

REACTIONS (3)
  - BACTERIAL INFECTION [None]
  - LOCALISED INFECTION [None]
  - TOOTH INFECTION [None]
